FAERS Safety Report 9181126 (Version 5)
Quarter: 2015Q1

REPORT INFORMATION
  Report Type: Spontaneous
  Country: US (occurrence: US)
  Receive Date: 20130322
  Receipt Date: 20150313
  Transmission Date: 20150721
  Serious: Yes (Hospitalization, Other)
  Sender: FDA-Public Use
  Company Number: US-BAYER-2013-034631

PATIENT
  Age: 48 Year
  Sex: Female

DRUGS (6)
  1. GIANVI [Suspect]
     Active Substance: DROSPIRENONE\ETHINYL ESTRADIOL
     Indication: CONTRACEPTION
     Dosage: UNK
     Dates: start: 201007, end: 20120314
  2. YAZ [Suspect]
     Active Substance: DROSPIRENONE\ETHINYL ESTRADIOL
     Indication: CONTRACEPTION
  3. YAZ [Suspect]
     Active Substance: DROSPIRENONE\ETHINYL ESTRADIOL
     Indication: MENOPAUSAL SYMPTOMS
  4. VITAMIN B12 AMINO [Concomitant]
     Dosage: UNK, ONCE
  5. YAZ [Suspect]
     Active Substance: DROSPIRENONE\ETHINYL ESTRADIOL
     Indication: DYSMENORRHOEA
     Dosage: UNK
     Dates: start: 201003, end: 201007
  6. CYANOCOBALAMIN. [Concomitant]
     Active Substance: CYANOCOBALAMIN

REACTIONS (15)
  - Pain [None]
  - Dizziness [None]
  - Vision blurred [None]
  - Blindness transient [None]
  - Ischaemic stroke [None]
  - Syncope [None]
  - Limb discomfort [None]
  - Hypoaesthesia [None]
  - Cerebral infarction [None]
  - Injury [None]
  - Paradoxical embolism [None]
  - Headache [None]
  - Visual acuity reduced [None]
  - Thrombosis [None]
  - Quadranopia [None]

NARRATIVE: CASE EVENT DATE: 20120313
